FAERS Safety Report 5221055-0 (Version None)
Quarter: 2007Q1

REPORT INFORMATION
  Report Type: 
  Country: None (occurrence: None)
  Receive Date: 20070123
  Receipt Date: 20070111
  Transmission Date: 20070707
  Serious: Yes (Disabling, Other)
  Sender: FDA-Public Use
  Company Number: 2007RL000008

PATIENT
  Age: 76 Year
  Sex: Female
  Weight: 65.7716 kg

DRUGS (7)
  1. DYNACIRC CR [Suspect]
     Indication: HYPERTENSION
     Dosage: 5 MG; QD; PO
     Route: 048
     Dates: start: 20060901, end: 20070103
  2. THYROID THERAPY [Concomitant]
  3. TRAZODONE HCL [Concomitant]
  4. DIOVAN [Concomitant]
  5. ZOLOFT [Concomitant]
  6. HYDROCHLOROTHIAZIDE [Concomitant]
  7. INDERAL [Concomitant]

REACTIONS (9)
  - ARTHRALGIA [None]
  - DYSPNOEA [None]
  - FATIGUE [None]
  - GAIT DISTURBANCE [None]
  - HEART RATE INCREASED [None]
  - HEART RATE IRREGULAR [None]
  - JOINT SWELLING [None]
  - OEDEMA PERIPHERAL [None]
  - VENTRICULAR EXTRASYSTOLES [None]
